FAERS Safety Report 11225308 (Version 1)
Quarter: 2015Q2

REPORT INFORMATION
  Report Type: Spontaneous
  Country: FR (occurrence: FR)
  Receive Date: 20150629
  Receipt Date: 20150629
  Transmission Date: 20150821
  Serious: Yes (Hospitalization)
  Sender: FDA-Public Use
  Company Number: FR-PFIZER INC-2015208841

PATIENT
  Age: 24 Year
  Sex: Male

DRUGS (2)
  1. TAZOCILLINE [Suspect]
     Active Substance: PIPERACILLIN SODIUM\TAZOBACTAM SODIUM
     Indication: ABSCESS INTESTINAL
     Dosage: 3 G, 4X/DAY
     Dates: start: 20150514
  2. NUTRISON ENERGY [Concomitant]
     Indication: ENTERAL NUTRITION
     Dosage: 1500 ML, DAILY
     Dates: start: 201505

REACTIONS (6)
  - Rash [Unknown]
  - Drug reaction with eosinophilia and systemic symptoms [Recovered/Resolved]
  - Pyrexia [Unknown]
  - Hepatocellular injury [Unknown]
  - Myalgia [Unknown]
  - Acute kidney injury [Unknown]

NARRATIVE: CASE EVENT DATE: 20150603
